FAERS Safety Report 20007965 (Version 1)
Quarter: 2021Q4

REPORT INFORMATION
  Report Type: Spontaneous
  Country: US (occurrence: US)
  Receive Date: 20211028
  Receipt Date: 20211028
  Transmission Date: 20220303
  Serious: Yes (Hospitalization, Other)
  Sender: FDA-Public Use
  Company Number: US-AMGEN-USASP2021164270

PATIENT
  Age: 55 Year
  Sex: Female

DRUGS (14)
  1. OTEZLA [Suspect]
     Active Substance: APREMILAST
     Indication: Psoriatic arthropathy
     Dosage: 30 MILLIGRAM, BID
     Route: 048
     Dates: start: 20190111
  2. OTEZLA [Suspect]
     Active Substance: APREMILAST
     Dosage: 30 MILLIGRAM, BID
     Route: 048
  3. ALBUTEROL [Concomitant]
     Active Substance: ALBUTEROL
  4. ACETOMIN [Concomitant]
  5. ASPIRIN [Concomitant]
     Active Substance: ASPIRIN
  6. DULOXETINE [Concomitant]
     Active Substance: DULOXETINE
  7. EVOXAC [Concomitant]
     Active Substance: CEVIMELINE HYDROCHLORIDE
  8. FISH OIL [Concomitant]
     Active Substance: FISH OIL
  9. SIMVASTATIN [Concomitant]
     Active Substance: SIMVASTATIN
  10. GINGER ROOT [ZINGIBER OFFICINALE ROOT] [Concomitant]
  11. CLARITIN [Concomitant]
     Active Substance: LORATADINE
  12. ZOCOR [Concomitant]
     Active Substance: SIMVASTATIN
  13. NADOLOL [Concomitant]
     Active Substance: NADOLOL
  14. MELOXICAM [Concomitant]
     Active Substance: MELOXICAM

REACTIONS (8)
  - Psoriatic arthropathy [Not Recovered/Not Resolved]
  - Unevaluable event [Not Recovered/Not Resolved]
  - Neuralgia [Not Recovered/Not Resolved]
  - Blood glucose decreased [Not Recovered/Not Resolved]
  - Infection [Not Recovered/Not Resolved]
  - Illness [Not Recovered/Not Resolved]
  - Product dose omission issue [Unknown]
  - Diarrhoea [Not Recovered/Not Resolved]

NARRATIVE: CASE EVENT DATE: 20210101
